FAERS Safety Report 9745757 (Version 1)
Quarter: 2013Q4

REPORT INFORMATION
  Report Type: Spontaneous
  Country: FR (occurrence: FR)
  Receive Date: 20131211
  Receipt Date: 20131211
  Transmission Date: 20140711
  Serious: Yes (Hospitalization, Other)
  Sender: FDA-Public Use
  Company Number: FR-UCBSA-105617

PATIENT
  Age: 17 Year
  Sex: Male

DRUGS (4)
  1. VIMPAT [Suspect]
     Indication: RASMUSSEN ENCEPHALITIS
     Dosage: 100 MG
     Route: 048
     Dates: start: 20130924, end: 20131018
  2. HUMIRA [Suspect]
     Indication: RASMUSSEN ENCEPHALITIS
     Dosage: 2.8571 MG
     Route: 058
     Dates: start: 201307, end: 20131018
  3. TEGRETOL [Concomitant]
     Dates: start: 2011
  4. URBANYL [Concomitant]
     Dates: start: 201212

REACTIONS (2)
  - Blood creatine phosphokinase increased [Recovered/Resolved]
  - Partial seizures [Unknown]
